FAERS Safety Report 17798522 (Version 2)
Quarter: 2020Q2

REPORT INFORMATION
  Report Type: Spontaneous
  Country: BE (occurrence: BE)
  Receive Date: 20200518
  Receipt Date: 20200626
  Transmission Date: 20200714
  Serious: Yes (Other)
  Sender: FDA-Public Use
  Company Number: BE-MYLANLABS-2020M1047718

PATIENT
  Age: 83 Year
  Sex: Female
  Weight: 73.4 kg

DRUGS (17)
  1. UNI DIAMICRON [Interacting]
     Active Substance: GLICLAZIDE
     Indication: DIABETES MELLITUS
     Dosage: 60 MG, BID
  2. METFORMIN [Interacting]
     Active Substance: METFORMIN HYDROCHLORIDE
     Indication: DIABETES MELLITUS
     Dosage: 500 MG, BID
     Dates: end: 20200401
  3. PROLOPA [Interacting]
     Active Substance: BENSERAZIDE\LEVODOPA
     Dosage: 0.5 DF, QD
  4. ZYPREXA [Interacting]
     Active Substance: OLANZAPINE
     Dosage: 1/2 TABLET 2X/DAY  TREATMENT WAS SUSPENDED FOR 2 DAYS 11/04 AND 12/04 AND THEN RESUMED
     Dates: start: 20200407
  5. PRADAXA [Interacting]
     Active Substance: DABIGATRAN ETEXILATE MESYLATE
     Dosage: UNK
  6. MAGNETOP /00434501/ [Interacting]
     Active Substance: MAGNESIUM CITRATE
     Indication: SUPPLEMENTATION THERAPY
     Dosage: 450 MG, QD
     Route: 048
     Dates: start: 20200410
  7. PERINDOPRIL [Interacting]
     Active Substance: PERINDOPRIL
     Dosage: 2 MG, QD
  8. TRAZODONE [Suspect]
     Active Substance: TRAZODONE HYDROCHLORIDE
     Indication: DEPRESSION
     Dosage: 1 DOSAGE FORM, QD 1/4 TABLET IN THE MORNING AND AT NOON AND 1/2 TABLET IN THE EVENING
  9. ZYPREXA [Interacting]
     Active Substance: OLANZAPINE
     Indication: BEHAVIOUR DISORDER
     Dosage: UNK
  10. ALGOSTASE MONO [Interacting]
     Active Substance: ACETAMINOPHEN
     Dosage: 1 DF, TID
  11. KALIUM                             /00031401/ [Interacting]
     Active Substance: POTASSIUM CHLORIDE
     Indication: SUPPLEMENTATION THERAPY
     Dosage: 600 MG
     Route: 048
     Dates: start: 20200409
  12. MOVICOL [Interacting]
     Active Substance: POLYETHYLENE GLYCOL 3350\POTASSIUM CHLORIDE\SODIUM BICARBONATE\SODIUM CHLORIDE
     Dosage: 1 DF, QD
  13. TRAZODONE [Interacting]
     Active Substance: TRAZODONE HYDROCHLORIDE
     Dosage: UNK
  14. PLAQUENIL [Interacting]
     Active Substance: HYDROXYCHLOROQUINE SULFATE
     Indication: CORONAVIRUS INFECTION
     Dosage: DAY 1: 400MG 2X/D DAY 2-4: 200MG 1X/D  7/04 : RECEIVED 2X 400 MG 08/04 TO 10/04
     Route: 048
     Dates: start: 20200407, end: 20200411
  15. CONTRAMAL [Interacting]
     Active Substance: TRAMADOL HYDROCHLORIDE
     Dosage: 1 DOSAGE FORM, PRN
  16. CLEXANE [Interacting]
     Active Substance: ENOXAPARIN SODIUM
     Dosage: UNK
  17. L-THYROXINE                        /00068001/ [Interacting]
     Active Substance: LEVOTHYROXINE
     Dosage: 150 MICROGRAM, QD

REACTIONS (3)
  - Drug interaction [Recovering/Resolving]
  - Off label use [Unknown]
  - Electrocardiogram QT prolonged [Recovering/Resolving]

NARRATIVE: CASE EVENT DATE: 20200407
